FAERS Safety Report 8505405-5 (Version None)
Quarter: 2012Q3

REPORT INFORMATION
  Report Type: 
  Country: None (occurrence: None)
  Receive Date: 20120712
  Receipt Date: 20120710
  Transmission Date: 20120928
  Serious: Yes (Hospitalization)
  Sender: FDA-Public Use
  Company Number: US-PFIZER INC-2012128959

PATIENT
  Sex: Male
  Weight: 45.351 kg

DRUGS (3)
  1. GENOTROPIN [Suspect]
     Indication: ADRENOGENITAL SYNDROME
     Dosage: 2 MG, DAILY
  2. HYDROCORTISONE [Concomitant]
     Indication: ADRENOGENITAL SYNDROME
     Dosage: 5 MG, 2X/DAY
     Dates: start: 20040101
  3. FLORINEF [Concomitant]
     Indication: ADRENOGENITAL SYNDROME
     Dosage: 1.25 UG, DAILY
     Dates: start: 20040101

REACTIONS (1)
  - PAPILLOEDEMA [None]
